FAERS Safety Report 8270075-0 (Version None)
Quarter: 2012Q2

REPORT INFORMATION
  Report Type: 
  Country: None (occurrence: None)
  Receive Date: 20120410
  Receipt Date: 20120328
  Transmission Date: 20120825
  Serious: Yes (Hospitalization, Other)
  Sender: FDA-Public Use
  Company Number: JP-EISAI INC-E7389-01773-CLI-JP

PATIENT
  Sex: Female
  Weight: 42 kg

DRUGS (18)
  1. NEU-UP [Concomitant]
     Indication: PROPHYLAXIS
     Route: 058
  2. LEVOTHYROXINE SODIUM [Concomitant]
     Route: 048
  3. HALAVEN [Suspect]
     Indication: BREAST CANCER RECURRENT
     Route: 041
     Dates: start: 20110928
  4. HALAVEN [Suspect]
     Route: 041
     Dates: start: 20110819, end: 20110819
  5. RHYTHMY [Concomitant]
     Route: 048
  6. MUCOSTA [Concomitant]
     Indication: PROPHYLAXIS
     Route: 048
  7. HALAVEN [Suspect]
     Route: 041
     Dates: start: 20111014, end: 20111014
  8. HALAVEN [Suspect]
     Indication: METASTASES TO LIVER
     Route: 041
     Dates: start: 20111102, end: 20111102
  9. URSO 250 [Concomitant]
     Route: 048
  10. JUZEN-TAIHO-TO [Concomitant]
     Route: 048
  11. PRIMPERAN TAB [Concomitant]
     Indication: PROPHYLAXIS
     Route: 048
  12. NEU-UP [Concomitant]
  13. FERUM [Concomitant]
  14. HALAVEN [Suspect]
     Route: 041
     Dates: start: 20110901, end: 20110916
  15. MUCOSTA [Concomitant]
  16. PRIMPERAN TAB [Concomitant]
  17. MAGMITT [Concomitant]
     Indication: PROPHYLAXIS
     Route: 048
  18. MAGMITT [Concomitant]

REACTIONS (4)
  - ANAEMIA [None]
  - LYMPHOPENIA [None]
  - LEUKOPENIA [None]
  - NEUTROPENIA [None]
